FAERS Safety Report 12964940 (Version 1)
Quarter: 2016Q4

REPORT INFORMATION
  Report Type: Spontaneous
  Country: US (occurrence: US)
  Receive Date: 20161122
  Receipt Date: 20161122
  Transmission Date: 20170207
  Serious: No
  Sender: FDA-Public Use
  Company Number: US-ALLERGAN-1672735US

PATIENT
  Age: 4 Decade
  Sex: Female

DRUGS (2)
  1. KYBELLA [Suspect]
     Active Substance: DEOXYCHOLIC ACID
     Indication: PRODUCT USED FOR UNKNOWN INDICATION
     Dosage: 4 CC WITH0.2 PER INJECTION POINT
     Route: 058
     Dates: start: 20160604, end: 20160604
  2. KYBELLA [Suspect]
     Active Substance: DEOXYCHOLIC ACID
     Dosage: 8 CC WITH0.2 PER INJECTION POINT
     Route: 058
     Dates: start: 20160708, end: 20160708

REACTIONS (1)
  - Drug ineffective [Unknown]
